FAERS Safety Report 6966281-5 (Version None)
Quarter: 2010Q3

REPORT INFORMATION
  Report Type: 
  Country: None (occurrence: None)
  Receive Date: 20100903
  Receipt Date: 20100823
  Transmission Date: 20110219
  Serious: Yes (Other)
  Sender: FDA-Public Use
  Company Number: US-GENENTECH-259508

PATIENT

DRUGS (2)
  1. RITUXAN [Suspect]
     Indication: MANTLE CELL LYMPHOMA
     Dosage: 375 MG/M2, 1/WEEK
     Route: 042
  2. LENALIDOMIDE [Suspect]
     Indication: MANTLE CELL LYMPHOMA
     Dosage: 10 MG, UNK
     Route: 048

REACTIONS (20)
  - ALANINE AMINOTRANSFERASE INCREASED [None]
  - ASPARTATE AMINOTRANSFERASE INCREASED [None]
  - ATAXIA [None]
  - COUGH [None]
  - DEEP VEIN THROMBOSIS [None]
  - DYSPNOEA [None]
  - FACE OEDEMA [None]
  - FATIGUE [None]
  - FEBRILE NEUTROPENIA [None]
  - HYPERCALCAEMIA [None]
  - INFECTION [None]
  - LYMPHOPENIA [None]
  - MYALGIA [None]
  - NEUTROPENIA [None]
  - PERIPHERAL SENSORY NEUROPATHY [None]
  - PYREXIA [None]
  - RASH [None]
  - RESPIRATORY FAILURE [None]
  - THROMBOCYTOPENIA [None]
  - TREMOR [None]
